FAERS Safety Report 6402600-6 (Version None)
Quarter: 2009Q4

REPORT INFORMATION
  Report Type: 
  Country: None (occurrence: None)
  Receive Date: 20091009
  Receipt Date: 20091002
  Transmission Date: 20100525
  Serious: Yes (Other)
  Sender: FDA-Public Use
  Company Number: 2009SP028329

PATIENT
  Age: 50 Year
  Sex: Male

DRUGS (3)
  1. DESLORATADINE [Suspect]
     Indication: SINUSITIS
     Dosage: 1 DF; ONCE; PO
     Route: 048
     Dates: start: 20091001, end: 20091001
  2. SERETIDINE /01420901/ [Concomitant]
  3. ALPRAZOLAM [Concomitant]

REACTIONS (4)
  - DISSOCIATIVE DISORDER [None]
  - HALLUCINATION, VISUAL [None]
  - PANIC DISORDER [None]
  - TREMOR [None]
